FAERS Safety Report 4998444-2 (Version None)
Quarter: 2006Q2

REPORT INFORMATION
  Report Type: 
  Country: None (occurrence: None)
  Receive Date: 20060510
  Receipt Date: 20060415
  Transmission Date: 20061013
  Serious: Yes (Hospitalization)
  Sender: FDA-Public Use
  Company Number: NL-GLAXOSMITHKLINE-B0421284A

PATIENT
  Age: 50 Year
  Sex: Female

DRUGS (3)
  1. SUMATRIPTAN SUCCINATE [Suspect]
     Indication: MIGRAINE
     Dosage: 50MG AS REQUIRED
     Route: 065
     Dates: start: 19950101
  2. LISINOPRIL [Concomitant]
     Dates: start: 20060415
  3. CORDARONE [Concomitant]
     Route: 065
     Dates: end: 20060415

REACTIONS (3)
  - BLOOD PRESSURE IMMEASURABLE [None]
  - CHEST PAIN [None]
  - HEART RATE DECREASED [None]
